FAERS Safety Report 10627977 (Version 1)
Quarter: 2014Q4

REPORT INFORMATION
  Report Type: Spontaneous
  Country: US (occurrence: US)
  Receive Date: 20141205
  Receipt Date: 20141205
  Transmission Date: 20150529
  Serious: No
  Sender: FDA-Public Use
  Company Number: US-BRISTOL-MYERS SQUIBB COMPANY-20187993

PATIENT
  Age: 59 Year
  Sex: Male

DRUGS (1)
  1. ERBITUX [Suspect]
     Active Substance: CETUXIMAB
     Dosage: SEVEN INFUSION

REACTIONS (8)
  - Dyspnoea [Unknown]
  - White blood cell count decreased [Unknown]
  - Glossodynia [Unknown]
  - Swollen tongue [Unknown]
  - Onychoclasis [Unknown]
  - Headache [Unknown]
  - Skin exfoliation [Unknown]
  - Fatigue [Unknown]
